FAERS Safety Report 12395434 (Version 1)
Quarter: 2016Q2

REPORT INFORMATION
  Report Type: Spontaneous
  Country: RU (occurrence: RU)
  Receive Date: 20160523
  Receipt Date: 20160523
  Transmission Date: 20160815
  Serious: Yes (Hospitalization)
  Sender: FDA-Public Use
  Company Number: RU-MYLANLABS-2016M1021060

PATIENT

DRUGS (4)
  1. DOXORUBICIN [Suspect]
     Active Substance: DOXORUBICIN
     Indication: NEOPLASM MALIGNANT
     Dosage: 6 COURSES OF TOTAL DOSE 620 MG
     Route: 065
     Dates: start: 20121108
  2. DOXORUBICIN [Suspect]
     Active Substance: DOXORUBICIN
     Dosage: ANOTHER 2 COURSES OF TOTAL DOSE 280 MG
     Route: 065
     Dates: start: 201402
  3. PACLITAXEL. [Suspect]
     Active Substance: PACLITAXEL
     Indication: NEOPLASM MALIGNANT
     Dosage: 6 COURSES
     Route: 065
  4. TRASTUZUMAB [Suspect]
     Active Substance: TRASTUZUMAB
     Indication: NEOPLASM MALIGNANT
     Route: 050
     Dates: start: 20130514, end: 20140729

REACTIONS (2)
  - Cardiac failure chronic [Recovered/Resolved]
  - Congestive cardiomyopathy [Recovered/Resolved]
